FAERS Safety Report 9698342 (Version 2)
Quarter: 2013Q4

REPORT INFORMATION
  Report Type: Spontaneous
  Country: US (occurrence: US)
  Receive Date: 20131120
  Receipt Date: 20131120
  Transmission Date: 20140711
  Serious: No
  Sender: FDA-Public Use
  Company Number: US-GILEAD-2013-0086326

PATIENT
  Sex: Male

DRUGS (2)
  1. LETAIRIS [Suspect]
     Indication: PULMONARY ARTERIAL HYPERTENSION
     Dosage: 5 MG, QD
     Dates: start: 20130730
  2. ADCIRCA [Concomitant]

REACTIONS (3)
  - Increased upper airway secretion [Unknown]
  - Upper respiratory tract congestion [Unknown]
  - Dyspnoea [Unknown]
